FAERS Safety Report 25074740 (Version 2)
Quarter: 2025Q2

REPORT INFORMATION
  Report Type: Spontaneous
  Country: RO (occurrence: RO)
  Receive Date: 20250313
  Receipt Date: 20250507
  Transmission Date: 20250717
  Serious: Yes (Other)
  Sender: ELI LILLY AND COMPANY
  Company Number: RO-ELI_LILLY_AND_COMPANY-RO202503003331

PATIENT
  Age: 64 Year
  Sex: Female

DRUGS (3)
  1. TALTZ [Suspect]
     Active Substance: IXEKIZUMAB
     Indication: Psoriasis
     Route: 058
     Dates: start: 20240304, end: 20241128
  2. PERINDOPRIL [Concomitant]
     Active Substance: PERINDOPRIL
     Indication: Product used for unknown indication
     Dosage: 1 DOSAGE FORM, DAILY
  3. ISONIAZID [Concomitant]
     Active Substance: ISONIAZID
     Indication: Product used for unknown indication
     Dosage: 300 MG, DAILY

REACTIONS (2)
  - Metastases to lymph nodes [Unknown]
  - Breast cancer stage II [Recovering/Resolving]
